FAERS Safety Report 5246742-X (Version None)
Quarter: 2007Q1

REPORT INFORMATION
  Report Type: 
  Country: None (occurrence: None)
  Receive Date: 20070216
  Receipt Date: 20070209
  Transmission Date: 20070707
  Serious: Yes (Death, Other)
  Sender: FDA-Public Use
  Company Number: TPA2007A00216

PATIENT
  Age: 27 Year
  Sex: Male

DRUGS (4)
  1. ROZEREM [Suspect]
     Indication: INSOMNIA
     Dosage: 1 TAB., PER ORAL
     Route: 048
  2. AMBIEN [Suspect]
     Indication: INSOMNIA
     Dosage: 10 MG, 2-3 DOSES
  3. AMBIEN [Suspect]
     Indication: MENTAL DISORDER
     Dosage: 10 MG, 2-3 DOSES
  4. ZOLOFT [Concomitant]

REACTIONS (5)
  - ASPIRATION [None]
  - DEPRESSED LEVEL OF CONSCIOUSNESS [None]
  - INCORRECT DOSE ADMINISTERED [None]
  - RESPIRATORY FAILURE [None]
  - VOMITING [None]
